FAERS Safety Report 18579585 (Version 1)
Quarter: 2020Q4

REPORT INFORMATION
  Report Type: Spontaneous
  Country: US (occurrence: US)
  Receive Date: 20201204
  Receipt Date: 20201204
  Transmission Date: 20210114
  Serious: No
  Sender: FDA-Public Use
  Company Number: US-HORIZON-2020HZN01829

PATIENT
  Age: 59 Year
  Sex: Female
  Weight: 79.4 kg

DRUGS (22)
  1. BUSPIRONE HCL [Concomitant]
     Active Substance: BUSPIRONE HYDROCHLORIDE
  2. METFORMIN [Concomitant]
     Active Substance: METFORMIN HYDROCHLORIDE
  3. BACLOFEN. [Concomitant]
     Active Substance: BACLOFEN
  4. CALCIUM [Concomitant]
     Active Substance: CALCIUM
  5. BUPROPION HCL [Concomitant]
     Active Substance: BUPROPION HYDROCHLORIDE
  6. METOCLOPRAMIDE. [Concomitant]
     Active Substance: METOCLOPRAMIDE
  7. OMEGA3-6-9 [Concomitant]
  8. VITAMIN D [Concomitant]
     Active Substance: VITAMIN D NOS
  9. LISINOPRIL. [Concomitant]
     Active Substance: LISINOPRIL
  10. NIACIN. [Concomitant]
     Active Substance: NIACIN
  11. DEPO-ESTRADIOL [Concomitant]
     Active Substance: ESTRADIOL CYPIONATE
  12. TRAMADOL. [Concomitant]
     Active Substance: TRAMADOL
  13. OXYCODONE HYDROCHLORIDE. [Concomitant]
     Active Substance: OXYCODONE HYDROCHLORIDE
  14. CELECOXIB. [Concomitant]
     Active Substance: CELECOXIB
  15. CYCLOBENZAPRINE HCL [Concomitant]
     Active Substance: CYCLOBENZAPRINE HYDROCHLORIDE
  16. ESZOPICLONE. [Concomitant]
     Active Substance: ESZOPICLONE
  17. TIZANIDINE HCL [Concomitant]
     Active Substance: TIZANIDINE HYDROCHLORIDE
  18. EUTHYROX [Concomitant]
     Active Substance: LEVOTHYROXINE SODIUM
  19. TEPEZZA [Suspect]
     Active Substance: TEPROTUMUMAB-TRBW
     Indication: TOXIC GOITRE
     Dosage: 1588 MG EVERY 3 WEEKS
  20. BUTALBITAL-CAFFEINE-ACETAMINIPHEN-CODEIN [Concomitant]
  21. BIOTIN [Concomitant]
     Active Substance: BIOTIN
  22. OMEPRAZOLE. [Concomitant]
     Active Substance: OMEPRAZOLE

REACTIONS (2)
  - Headache [Recovering/Resolving]
  - Gastrooesophageal reflux disease [Recovering/Resolving]
